FAERS Safety Report 13230410 (Version 2)
Quarter: 2017Q1

REPORT INFORMATION
  Report Type: Spontaneous
  Country: US (occurrence: US)
  Receive Date: 20170214
  Receipt Date: 20170215
  Transmission Date: 20170428
  Serious: Yes (Other)
  Sender: FDA-Public Use
  Company Number: US-TEVA-717308USA

PATIENT
  Sex: Female

DRUGS (7)
  1. CINNAMON. [Concomitant]
     Active Substance: CINNAMON
  2. COPAXONE [Suspect]
     Active Substance: GLATIRAMER ACETATE
     Indication: MULTIPLE SCLEROSIS
     Route: 058
     Dates: start: 201405
  3. HAWTHORN [Concomitant]
     Active Substance: CRATAEGUS LAEVIGATA FRUIT
  4. MAGNESIUM [Concomitant]
     Active Substance: MAGNESIUM
  5. COD LIVER OIL [Concomitant]
     Active Substance: COD LIVER OIL
  6. TEGRETOL [Concomitant]
     Active Substance: CARBAMAZEPINE
  7. GLUCOSAMINE [Concomitant]
     Active Substance: GLUCOSAMINE

REACTIONS (6)
  - Walking aid user [Unknown]
  - Back pain [Not Recovered/Not Resolved]
  - Multiple sclerosis relapse [Recovering/Resolving]
  - Arthralgia [Not Recovered/Not Resolved]
  - Pain in extremity [Not Recovered/Not Resolved]
  - Drug dose omission [Unknown]

NARRATIVE: CASE EVENT DATE: 2016
